FAERS Safety Report 8875413 (Version 1)
Quarter: 2012Q4

REPORT INFORMATION
  Report Type: 
  Country: US (occurrence: US)
  Receive Date: 20121029
  Receipt Date: 20121029
  Transmission Date: 20130627
  Serious: Yes (Other)
  Sender: FDA-Public Use
  Company Number: US-PFIZER INC-HQWYE874319APR06

PATIENT
  Age: 63 Year
  Sex: Female

DRUGS (4)
  1. PREMARIN [Suspect]
     Indication: OESTROGEN REPLACEMENT THERAPY
     Dosage: UNK
     Route: 048
     Dates: start: 1992, end: 200204
  2. PROVERA [Suspect]
     Dosage: UNK
     Route: 048
     Dates: start: 1992, end: 200204
  3. ESTRADIOL [Suspect]
     Dosage: UNK
     Route: 067
     Dates: start: 1992, end: 200204
  4. CYCRIN [Suspect]
     Dosage: UNK
     Route: 048
     Dates: start: 1992, end: 200204

REACTIONS (1)
  - Breast cancer [Unknown]
